FAERS Safety Report 9712411 (Version 1)
Quarter: 2013Q4

REPORT INFORMATION
  Report Type: Spontaneous
  Country: US (occurrence: US)
  Receive Date: 20131126
  Receipt Date: 20131126
  Transmission Date: 20140711
  Serious: No
  Sender: FDA-Public Use
  Company Number: US-TEVA-446550USA

PATIENT
  Sex: Female
  Weight: 99.88 kg

DRUGS (2)
  1. AZILECT [Suspect]
     Indication: PARKINSON^S DISEASE
  2. PRAMIPEXOLE [Suspect]

REACTIONS (5)
  - Oedema peripheral [Not Recovered/Not Resolved]
  - Joint swelling [Not Recovered/Not Resolved]
  - Arthralgia [Not Recovered/Not Resolved]
  - Confusional state [Not Recovered/Not Resolved]
  - Balance disorder [Not Recovered/Not Resolved]
